FAERS Safety Report 8250112-X (Version None)
Quarter: 2012Q1

REPORT INFORMATION
  Report Type: 
  Country: None (occurrence: None)
  Receive Date: 20120328
  Receipt Date: 20120306
  Transmission Date: 20120608
  Serious: Yes (Other)
  Sender: FDA-Public Use
  Company Number: DE-JNJFOC-20120303248

PATIENT
  Age: 70 Year
  Sex: 0

DRUGS (2)
  1. DACOGEN [Suspect]
     Indication: ACUTE MYELOID LEUKAEMIA
     Dosage: 15 MG/M2, 1 IN 1 DAY, INTRAVENOUS
     Route: 042
  2. TRETINOIN [Suspect]
     Indication: ACUTE MYELOID LEUKAEMIA

REACTIONS (12)
  - BLOOD CREATINE INCREASED [None]
  - BLOOD BILIRUBIN INCREASED [None]
  - PROTHROMBIN TIME SHORTENED [None]
  - ACTIVATED PARTIAL THROMBOPLASTIN TIME PROLONGED [None]
  - BONE MARROW FAILURE [None]
  - HYPOCALCAEMIA [None]
  - HYPERGLYCAEMIA [None]
  - HYPOGLYCAEMIA [None]
  - BLOOD FIBRINOGEN DECREASED [None]
  - ASPARTATE AMINOTRANSFERASE INCREASED [None]
  - BLOOD ALKALINE PHOSPHATASE INCREASED [None]
  - HYPERCALCAEMIA [None]
